FAERS Safety Report 22228065 (Version 2)
Quarter: 2023Q2

REPORT INFORMATION
  Report Type: Spontaneous
  Country: US (occurrence: US)
  Receive Date: 20230419
  Receipt Date: 20230619
  Transmission Date: 20230721
  Serious: Yes (Other)
  Sender: FDA-Public Use
  Company Number: US-SA-SAC20230418001149

PATIENT
  Age: 64 Year
  Sex: Male

DRUGS (2)
  1. DUPIXENT [Suspect]
     Active Substance: DUPILUMAB
     Indication: Dermatitis atopic
     Dosage: 600 MG, 1X
     Route: 058
     Dates: start: 20230315, end: 20230315
  2. DUPIXENT [Suspect]
     Active Substance: DUPILUMAB
     Dosage: 300 MG , FREQUENCY: OTHER
     Route: 058
     Dates: start: 2023

REACTIONS (6)
  - Haematochezia [Unknown]
  - Skin wrinkling [Unknown]
  - Skin hyperpigmentation [Unknown]
  - Skin exfoliation [Unknown]
  - Dermatitis atopic [Unknown]
  - Therapeutic response decreased [Unknown]

NARRATIVE: CASE EVENT DATE: 20230101
